FAERS Safety Report 6825593-6 (Version None)
Quarter: 2010Q3

REPORT INFORMATION
  Report Type: 
  Country: None (occurrence: None)
  Receive Date: 20100708
  Receipt Date: 20080319
  Transmission Date: 20110219
  Serious: No
  Sender: FDA-Public Use
  Company Number: US-PFIZER INC-2006156088

PATIENT
  Sex: Female
  Weight: 59.87 kg

DRUGS (3)
  1. CHANTIX [Suspect]
     Indication: SMOKING CESSATION THERAPY
     Route: 048
     Dates: start: 20061113, end: 20061214
  2. LEXAPRO [Concomitant]
     Dates: end: 20060101
  3. WELLBUTRIN [Concomitant]
     Indication: SMOKING CESSATION THERAPY
     Dates: end: 20060101

REACTIONS (2)
  - NAUSEA [None]
  - STRESS [None]
